FAERS Safety Report 8583147-8 (Version None)
Quarter: 2012Q3

REPORT INFORMATION
  Report Type: 
  Country: None (occurrence: None)
  Receive Date: 20120809
  Receipt Date: 20120807
  Transmission Date: 20120928
  Serious: Yes (Other)
  Sender: FDA-Public Use
  Company Number: CA-AMGEN-CANCT2011012080

PATIENT
  Age: 56 Year
  Sex: Male
  Weight: 63.5 kg

DRUGS (13)
  1. NORVASC [Concomitant]
     Dosage: 10 MG, QD
     Route: 048
     Dates: start: 20050101
  2. ASPIRIN [Concomitant]
     Dosage: 81 MG, QD
     Route: 048
     Dates: start: 20040101
  3. LIPITOR [Concomitant]
     Dosage: 10 MG, QD
     Route: 048
     Dates: start: 20070101
  4. BENAZEPRIL HYDROCHLORIDE [Concomitant]
     Route: 065
  5. PANTOPRAZOLE SODIUM [Concomitant]
     Dosage: 40 MG, QD
     Route: 048
     Dates: start: 20060501
  6. ETANERCEPT [Suspect]
     Indication: RHEUMATOID ARTHRITIS
     Dosage: 50 MG, QWK
     Route: 058
     Dates: start: 20090321, end: 20110226
  7. METHOTREXATE [Concomitant]
     Dosage: 20 MG, QWK
     Route: 048
     Dates: start: 20080820
  8. WELLBUTRIN XL [Concomitant]
     Dosage: 150 MG, QD
     Dates: start: 20060101
  9. BENADRYL [Concomitant]
     Dosage: 25 MG, QWK
     Route: 048
     Dates: start: 20090502
  10. AMLODIPINE [Concomitant]
     Route: 065
  11. PREDNISONE TAB [Concomitant]
     Dosage: 5 MG, BID
     Route: 048
     Dates: start: 20070401
  12. HYZAAR [Concomitant]
     Dosage: UNK UNK, QD
     Route: 048
     Dates: start: 20040101
  13. FOLIC ACID [Concomitant]
     Dosage: 5 MG, QD
     Route: 048
     Dates: start: 20070101

REACTIONS (1)
  - TRANSITIONAL CELL CARCINOMA [None]
